FAERS Safety Report 23058978 (Version 4)
Quarter: 2023Q4

REPORT INFORMATION
  Report Type: Spontaneous
  Country: US (occurrence: US)
  Receive Date: 20231012
  Receipt Date: 20231115
  Transmission Date: 20240110
  Serious: No
  Sender: FDA-Public Use
  Company Number: US-PFIZER INC-202300263019

PATIENT
  Age: 12 Year
  Sex: Male
  Weight: 37.1 kg

DRUGS (3)
  1. OXBRYTA [Suspect]
     Active Substance: VOXELOTOR
     Indication: Haemoglobin decreased
     Dosage: 3 TABLETS, ONCE DAILY, ORALLY.
     Route: 048
     Dates: start: 20230814
  2. OXBRYTA [Suspect]
     Active Substance: VOXELOTOR
     Indication: Priapism
  3. FOLIC ACID [Concomitant]
     Active Substance: FOLIC ACID

REACTIONS (1)
  - Headache [Recovered/Resolved]
